FAERS Safety Report 10459572 (Version 1)
Quarter: 2014Q3

REPORT INFORMATION
  Report Type: Spontaneous
  Country: DE (occurrence: DE)
  Receive Date: 20140917
  Receipt Date: 20140917
  Transmission Date: 20150326
  Serious: Yes (Other)
  Sender: FDA-Public Use
  Company Number: DE-PFIZER INC-2014250844

PATIENT
  Age: 74 Year
  Sex: Female

DRUGS (3)
  1. XALATAN [Suspect]
     Active Substance: LATANOPROST
     Indication: GLAUCOMA
     Dosage: UNK
     Dates: start: 2003
  2. PILOCARPINE [Concomitant]
     Active Substance: PILOCARPINE
     Dosage: IN THE MORNING, ALTERNATIVELY WITH COMBIGAN
  3. COMBIGAN [Concomitant]
     Active Substance: BRIMONIDINE TARTRATE\TIMOLOL MALEATE
     Dosage: IN THE MORNING, ALTERNATIVELY WITH PILOCARPINE

REACTIONS (7)
  - Sensation of foreign body [Unknown]
  - Ocular hyperaemia [Unknown]
  - Quality of life decreased [Unknown]
  - Dry eye [Unknown]
  - Product formulation issue [Unknown]
  - Eye irritation [Unknown]
  - Visual acuity reduced [Unknown]
